FAERS Safety Report 12755128 (Version 2)
Quarter: 2016Q3

REPORT INFORMATION
  Report Type: Report from Study
  Country: CA (occurrence: CA)
  Receive Date: 20160916
  Receipt Date: 20160921
  Transmission Date: 20161109
  Serious: Yes (Hospitalization)
  Sender: FDA-Public Use
  Company Number: CA-HLSUS-2016-CA-000435

PATIENT
  Age: 60 Year
  Sex: Male

DRUGS (1)
  1. CLOZARIL [Suspect]
     Active Substance: CLOZAPINE
     Route: 048
     Dates: start: 20100827

REACTIONS (16)
  - Myoclonus [Unknown]
  - Psychotic disorder [Unknown]
  - Pneumonia aspiration [Unknown]
  - Sepsis [Unknown]
  - Nasopharyngitis [Unknown]
  - Leukopenia [Unknown]
  - Cognitive disorder [Unknown]
  - Tremor [Unknown]
  - Neutropenia [Unknown]
  - Asthenia [Unknown]
  - Pneumonia [Unknown]
  - Nystagmus [Unknown]
  - Urinary incontinence [Unknown]
  - Hypotension [Unknown]
  - Constipation [Unknown]
  - Bladder cancer [Unknown]

NARRATIVE: CASE EVENT DATE: 201204
